FAERS Safety Report 18619952 (Version 3)
Quarter: 2021Q1

REPORT INFORMATION
  Report Type: Spontaneous
  Country: FR (occurrence: FR)
  Receive Date: 20201215
  Receipt Date: 20210128
  Transmission Date: 20210419
  Serious: Yes (Death)
  Sender: FDA-Public Use
  Company Number: FR-PFIZER INC-2020488742

PATIENT
  Age: 77 Year
  Sex: Male
  Weight: 65 kg

DRUGS (25)
  1. NORADRENALINE MYLAN [Suspect]
     Active Substance: NOREPINEPHRINE\NOREPINEPHRINE BITARTRATE
     Indication: CIRCULATORY COLLAPSE
     Dosage: 6 MG, 1X/DAY
     Route: 042
     Dates: start: 20201120, end: 20201120
  2. METHYLPREDNISOLONE MYLAN [METHYLPREDNISOLONE HEMISUCCINATE] [Suspect]
     Active Substance: METHYLPREDNISOLONE HEMISUCCINATE
     Indication: ADRENOCORTICAL STEROID THERAPY
     Dosage: UNK
     Dates: start: 20201030
  3. FUROSEMIDE. [Suspect]
     Active Substance: FUROSEMIDE
     Indication: DIURETIC THERAPY
     Dosage: UNK
     Dates: start: 20201104
  4. VANCOMYCINE MYLAN [VANCOMYCIN HYDROCHLORIDE] [Suspect]
     Active Substance: VANCOMYCIN HYDROCHLORIDE
     Indication: SEPTIC SHOCK
     Dosage: UNK
     Route: 042
     Dates: start: 20201114
  5. AMIKACIN [AMIKACIN SULFATE] [Suspect]
     Active Substance: AMIKACIN SULFATE
     Indication: SEPTIC SHOCK
     Dosage: UNK
     Route: 042
     Dates: start: 20201114, end: 20201114
  6. MEROPENEM PANPHARMA [Suspect]
     Active Substance: MEROPENEM
     Indication: SEPTIC SHOCK
     Dosage: 3 G, 1X/DAY
     Route: 042
     Dates: start: 20201114, end: 20201121
  7. MIDAZOLAM MYLAN [Suspect]
     Active Substance: MIDAZOLAM HYDROCHLORIDE
     Indication: SEDATION
     Dosage: 10 MG, CYCLIC (FREQ:1 H;)
     Route: 042
     Dates: start: 20201101
  8. HEPARINE SODIUM PANPHARMA [Suspect]
     Active Substance: HEPARIN SODIUM
     Indication: ANTICOAGULANT THERAPY
     Dosage: UNK
     Dates: start: 202011
  9. SUFENTANIL [SUFENTANIL CITRATE] [Suspect]
     Active Substance: SUFENTANIL CITRATE
     Indication: SEDATION
     Dosage: UNK
     Route: 042
     Dates: start: 20201101
  10. LOVENOX [Suspect]
     Active Substance: ENOXAPARIN SODIUM
     Indication: ANTICOAGULANT THERAPY
     Dosage: UNK
     Dates: start: 20201030, end: 20201102
  11. DEXAMETHASONE SODIUM PHOSPHATE. [Suspect]
     Active Substance: DEXAMETHASONE SODIUM PHOSPHATE
     Indication: ADRENOCORTICAL STEROID THERAPY
     Dosage: UNK
     Route: 042
     Dates: start: 20201030
  12. AMIODARONE [Suspect]
     Active Substance: AMIODARONE
     Indication: ATRIAL FIBRILLATION
     Dosage: UNK
     Dates: start: 20201102
  13. ACICLOVIR MYLAN [ACICLOVIR] [Suspect]
     Active Substance: ACYCLOVIR
     Indication: HERPES SIMPLEX
     Dosage: 600 MG, 1X/DAY
     Route: 042
     Dates: start: 202011
  14. PROPOFOL. [Suspect]
     Active Substance: PROPOFOL
     Indication: SEDATION
     Dosage: 50 ML, 1X/DAY
     Route: 042
     Dates: start: 202011
  15. CEFTRIAXONE SODIUM. [Suspect]
     Active Substance: CEFTRIAXONE SODIUM
     Indication: INFECTION
     Dosage: UNK
     Dates: start: 20201030, end: 20201107
  16. HYDROCORTISONE. [Suspect]
     Active Substance: HYDROCORTISONE
     Indication: ADRENAL INSUFFICIENCY
     Dosage: 100 MG, 1X/DAY
     Route: 042
     Dates: start: 202011
  17. CISATRACURIUM BESILATE [Suspect]
     Active Substance: CISATRACURIUM BESYLATE
     Indication: ENDOTRACHEAL INTUBATION
     Dosage: UNK
     Route: 042
     Dates: start: 20201101
  18. LEVOFLOXACINE ARROW [Suspect]
     Active Substance: LEVOFLOXACIN
     Indication: INFECTION
     Dosage: UNK
     Dates: start: 20201030, end: 20201102
  19. NUTRYELT [Suspect]
     Active Substance: IRON\MINERALS\POTASSIUM IOD\SODIUM FLUORIDE\SODIUM MOLYBDATE\SODIUM SELENITE\ZINC
     Indication: PARENTERAL NUTRITION
     Dosage: UNK
     Route: 042
     Dates: start: 202011
  20. IOMERON [Suspect]
     Active Substance: IOMEPROL
     Indication: COMPUTERISED TOMOGRAM
     Dosage: 70 ML, SINGLE
     Dates: start: 20201119, end: 20201119
  21. SMOFKABIVEN [Suspect]
     Active Substance: AMINO ACIDS\DEXTROSE\ELECTROLYTES NOS\SOYBEAN OIL
     Indication: PARENTERAL NUTRITION
     Dosage: UNK
     Route: 042
     Dates: start: 202011
  22. ERYTHROMYCINE PANPHARMA [Suspect]
     Active Substance: ERYTHROMYCIN LACTOBIONATE
     Indication: SEPTIC SHOCK
     Dosage: 300 MG, 1X/DAY
     Route: 042
     Dates: start: 20201120
  23. VALACYCLOVIR [Suspect]
     Active Substance: VALACYCLOVIR HYDROCHLORIDE
     Indication: HERPES SIMPLEX
     Dosage: UNK
     Dates: start: 20201113, end: 20201113
  24. ULTIVA [Suspect]
     Active Substance: REMIFENTANIL HYDROCHLORIDE
     Indication: PAIN
     Dosage: UNK
     Route: 042
  25. TERCIAN [CYAMEMAZINE TARTRATE] [Suspect]
     Active Substance: CYAMEMAZINE
     Indication: SEDATION
     Dosage: 300 MG, 1X/DAY
     Route: 042
     Dates: start: 20201114

REACTIONS (2)
  - Multiple organ dysfunction syndrome [Fatal]
  - Rash maculo-papular [Recovered/Resolved]

NARRATIVE: CASE EVENT DATE: 20201120
